FAERS Safety Report 19004902 (Version 1)
Quarter: 2021Q1

REPORT INFORMATION
  Report Type: Spontaneous
  Country: US (occurrence: US)
  Receive Date: 20210313
  Receipt Date: 20210313
  Transmission Date: 20210420
  Serious: No
  Sender: FDA-Public Use
  Company Number: NVSC2021US059225

PATIENT
  Age: 95 Year
  Sex: Female

DRUGS (1)
  1. VOLTAREN EMULGEL [Suspect]
     Active Substance: DICLOFENAC DIETHYLAMINE
     Indication: ARTHRITIS
     Dosage: UNKNOWN
     Route: 065
     Dates: start: 20210303, end: 20210308

REACTIONS (1)
  - Product use issue [Recovering/Resolving]

NARRATIVE: CASE EVENT DATE: 20210303
